FAERS Safety Report 17347082 (Version 1)
Quarter: 2020Q1

REPORT INFORMATION
  Report Type: Spontaneous
  Country: US (occurrence: US)
  Receive Date: 20200115
  Receipt Date: 20200115
  Transmission Date: 20200409
  Serious: No
  Sender: FDA-Public Use
  Company Number: None

PATIENT
  Age: 64 Year
  Sex: Female

DRUGS (1)
  1. REPATHA [Suspect]
     Active Substance: EVOLOCUMAB
     Indication: HYPERLIPIDAEMIA
     Dosage: OTHER
     Route: 058
     Dates: start: 20191113, end: 20200102

REACTIONS (4)
  - Urticaria [None]
  - Pruritus [None]
  - Skin irritation [None]
  - Erythema [None]

NARRATIVE: CASE EVENT DATE: 20200103
